FAERS Safety Report 7417471-9 (Version None)
Quarter: 2011Q2

REPORT INFORMATION
  Report Type: 
  Country: None (occurrence: None)
  Receive Date: 20110415
  Receipt Date: 20110412
  Transmission Date: 20111010
  Serious: Yes (Other)
  Sender: FDA-Public Use
  Company Number: DE-PFIZER INC-2011080814

PATIENT
  Sex: Male

DRUGS (2)
  1. INSPRA [Suspect]
  2. MARCUMAR [Concomitant]

REACTIONS (1)
  - EPISTAXIS [None]
